FAERS Safety Report 15954080 (Version 1)
Quarter: 2019Q1

REPORT INFORMATION
  Report Type: Report from Study
  Country: DE (occurrence: DE)
  Receive Date: 20190213
  Receipt Date: 20190213
  Transmission Date: 20190417
  Serious: Yes (Hospitalization, Other)
  Sender: FDA-Public Use
  Company Number: DE-SA-2017SA236742

PATIENT
  Age: 33 Year
  Sex: Female
  Weight: 84 kg

DRUGS (10)
  1. INSUMAN BASAL [Suspect]
     Active Substance: INSULIN HUMAN
     Dosage: 38 IU,QD
     Route: 058
     Dates: start: 20170724
  2. HYDROCORTISONE. [Concomitant]
     Active Substance: HYDROCORTISONE
     Dosage: UNK UNK,UNK
     Route: 065
     Dates: start: 20070101
  3. DHEA [Concomitant]
     Active Substance: PRASTERONE
     Dosage: UNK UNK,UNK
     Route: 065
     Dates: start: 20070101
  4. INSULIN LISPRO [Suspect]
     Active Substance: INSULIN LISPRO
     Indication: TYPE 1 DIABETES MELLITUS
     Dosage: 30 IU,QD
     Route: 058
     Dates: start: 20141022
  5. FOLIC ACID. [Concomitant]
     Active Substance: FOLIC ACID
     Dosage: UNK UNK,UNK
     Route: 065
     Dates: start: 20170407
  6. INSULIN GLARGINE [Suspect]
     Active Substance: INSULIN GLARGINE
     Dosage: 10 DF,QD
     Route: 051
     Dates: start: 20180130
  7. INSULIN LISPRO [Suspect]
     Active Substance: INSULIN LISPRO
     Dosage: UNK UNK, QD
     Route: 058
     Dates: start: 20170905
  8. INSUMAN BASAL [Suspect]
     Active Substance: INSULIN HUMAN
     Indication: TYPE 1 DIABETES MELLITUS
     Dosage: 34 IU,QD
     Route: 058
     Dates: start: 20170407
  9. INSULIN GLARGINE [Suspect]
     Active Substance: INSULIN GLARGINE
     Indication: TYPE 1 DIABETES MELLITUS
     Dosage: 15 DF,QD
     Route: 051
     Dates: start: 20171130, end: 20180125
  10. FLUDROCORTISONE ACETATE. [Concomitant]
     Active Substance: FLUDROCORTISONE ACETATE
     Dosage: UNK UNK,UNK
     Route: 065
     Dates: start: 20070101

REACTIONS (6)
  - Maternal exposure during breast feeding [Unknown]
  - Hypoglycaemia [Recovered/Resolved]
  - Hypoglycaemia [Recovered/Resolved]
  - Exposure during pregnancy [Unknown]
  - Gastroenteritis norovirus [Recovered/Resolved]
  - Hyperglycaemia [Recovered/Resolved]

NARRATIVE: CASE EVENT DATE: 20170205
